FAERS Safety Report 7380190-1 (Version None)
Quarter: 2011Q1

REPORT INFORMATION
  Report Type: 
  Country: None (occurrence: None)
  Receive Date: 20110329
  Receipt Date: 20110103
  Transmission Date: 20110831
  Serious: No
  Sender: FDA-Public Use
  Company Number: US-MYLANLABS-2010S1021295

PATIENT
  Age: 49 Year
  Sex: Female

DRUGS (1)
  1. ESTRADIOL [Suspect]
     Indication: HORMONE REPLACEMENT THERAPY
     Dosage: CHANGED QW
     Route: 062
     Dates: start: 20090601

REACTIONS (6)
  - INSOMNIA [None]
  - WEIGHT INCREASED [None]
  - DRUG EFFECT DECREASED [None]
  - APPLICATION SITE RASH [None]
  - HORMONE LEVEL ABNORMAL [None]
  - APPLICATION SITE PAIN [None]
